FAERS Safety Report 10643296 (Version 1)
Quarter: 2014Q4

REPORT INFORMATION
  Report Type: Report from Study
  Country: US (occurrence: None)
  Receive Date: 20141128
  Receipt Date: 20141128
  Transmission Date: 20150529
  Serious: Yes (Other)
  Sender: FDA-Public Use
  Company Number: 1953155

PATIENT
  Age: 51 Year
  Sex: Female

DRUGS (4)
  1. (RITUXIMAB) [Suspect]
     Active Substance: RITUXIMAB
     Indication: CHRONIC LYMPHOCYTIC LEUKAEMIA
     Dosage: 635 MG MILLIGRAM (S) (TOTAL) ?INTRAVENOUS (NOT OTHERWISE SPECIFIED)
     Route: 042
     Dates: start: 20100621, end: 20100621
  2. (CYCLOPHOSPHAMIDE) [Suspect]
     Active Substance: CYCLOPHOSPHAMIDE
     Indication: CHRONIC LYMPHOCYTIC LEUKAEMIA
     Dosage: 1020 MG MILLIGRA (S), TOTAL, UNKNOWN
     Dates: start: 20100621, end: 20130621
  3. (PEGFILGRASTIM) [Concomitant]
  4. NIPENT [Suspect]
     Active Substance: PENTOSTATIN
     Indication: CHRONIC LYMPHOCYTIC LEUKAEMIA
     Dosage: 7 MG MILLIGRAM (S), TOTAL, UNKNOWN
     Dates: start: 20100621, end: 20100621

REACTIONS (1)
  - Neutrophil count decreased [None]

NARRATIVE: CASE EVENT DATE: 20100719
